FAERS Safety Report 18105793 (Version 1)
Quarter: 2020Q3

REPORT INFORMATION
  Report Type: Report from Study
  Country: US (occurrence: US)
  Receive Date: 20200803
  Receipt Date: 20200803
  Transmission Date: 20201103
  Serious: Yes (Other)
  Sender: FDA-Public Use
  Company Number: US-GLAXOSMITHKLINE-US2020AMR097365

PATIENT
  Sex: Female

DRUGS (2)
  1. NIRAPARIB [Suspect]
     Active Substance: NIRAPARIB
     Indication: OVARIAN CANCER
     Dosage: 200 MG, QD
  2. OMEPRAZOLE. [Suspect]
     Active Substance: OMEPRAZOLE
     Indication: PRODUCT USED FOR UNKNOWN INDICATION
     Dosage: UNK

REACTIONS (10)
  - Recurrent cancer [Unknown]
  - Abdominal discomfort [Unknown]
  - Flatulence [Unknown]
  - Underdose [Unknown]
  - Blood count abnormal [Unknown]
  - Drug ineffective [Unknown]
  - Dyspepsia [Unknown]
  - Diarrhoea [Unknown]
  - Eructation [Unknown]
  - Nausea [Unknown]
